FAERS Safety Report 14519181 (Version 2)
Quarter: 2018Q2

REPORT INFORMATION
  Report Type: Spontaneous
  Country: DE (occurrence: DE)
  Receive Date: 20180212
  Receipt Date: 20180418
  Transmission Date: 20180711
  Serious: Yes (Hospitalization, Other)
  Sender: FDA-Public Use
  Company Number: DE-PFIZER INC-2018058554

PATIENT
  Age: 32 Year
  Sex: Female
  Weight: 90 kg

DRUGS (3)
  1. SERTRALINE HCL [Suspect]
     Active Substance: SERTRALINE HYDROCHLORIDE
     Dosage: UNK
  2. STELARA [Suspect]
     Active Substance: USTEKINUMAB
     Indication: PSORIASIS
     Dosage: 45 MG, SYRINGE, EVERY 12 WEEKS
     Route: 058
     Dates: start: 20150929, end: 20170327
  3. STELARA [Suspect]
     Active Substance: USTEKINUMAB
     Dosage: UNK
     Dates: end: 20180130

REACTIONS (3)
  - Amniotic cavity infection [Unknown]
  - Premature rupture of membranes [Unknown]
  - Foetal death [Recovered/Resolved]

NARRATIVE: CASE EVENT DATE: 20170805
